FAERS Safety Report 4700416-X (Version None)
Quarter: 2005Q2

REPORT INFORMATION
  Report Type: 
  Country: None (occurrence: None)
  Receive Date: 20050207
  Receipt Date: 20050207
  Transmission Date: 20051028
  Serious: No
  Sender: FDA-Public Use
  Company Number: None

PATIENT
  Sex: Female

DRUGS (5)
  1. OXYCONTIN [Suspect]
     Indication: FIBROMYALGIA
     Dosage: 80 MG Q 8 HOURS
     Dates: start: 20040927, end: 20041027
  2. OXYCONTIN [Suspect]
     Indication: INTERVERTEBRAL DISC PROTRUSION
     Dosage: 80 MG Q 8 HOURS
     Dates: start: 20040927, end: 20041027
  3. CELEBREX [Concomitant]
  4. NEURONTIN [Concomitant]
  5. SEROQUEL [Concomitant]

REACTIONS (2)
  - DRUG HYPERSENSITIVITY [None]
  - PHARMACEUTICAL PRODUCT COMPLAINT [None]
